FAERS Safety Report 25820922 (Version 2)
Quarter: 2025Q4

REPORT INFORMATION
  Report Type: Other
  Country: GB (occurrence: GB)
  Receive Date: 20250919
  Receipt Date: 20251006
  Transmission Date: 20260118
  Serious: Yes (Hospitalization, Other)
  Sender: GLENMARK
  Company Number: None

PATIENT
  Age: 74 Year
  Sex: Female

DRUGS (1)
  1. DAPAGLIFLOZIN [Suspect]
     Active Substance: DAPAGLIFLOZIN
     Indication: Product used for unknown indication
     Dosage: 10 MILLIGRAM, QD (10MG DAILY) (MARKET AUTHORIZATION HOLDER: AMAROX)
     Route: 065

REACTIONS (3)
  - Fall [Recovering/Resolving]
  - Multiple fractures [Recovering/Resolving]
  - Loss of consciousness [Recovered/Resolved with Sequelae]
